FAERS Safety Report 16360755 (Version 2)
Quarter: 2020Q3

REPORT INFORMATION
  Report Type: Spontaneous
  Country: US (occurrence: US)
  Receive Date: 20190528
  Receipt Date: 20200710
  Transmission Date: 20201102
  Serious: Yes (Hospitalization, Other)
  Sender: FDA-Public Use
  Company Number: US-AUROBINDO-AUR-APL-2018-052184

PATIENT
  Age: 50 Year
  Sex: Female

DRUGS (5)
  1. ONDANSETRON [Suspect]
     Active Substance: ONDANSETRON
     Indication: NAUSEA
     Dosage: 16 MILLIGRAM (IN 4MG DOSES)
     Route: 065
  2. PROMETHAZINE [Suspect]
     Active Substance: PROMETHAZINE HYDROCHLORIDE
     Indication: NAUSEA
     Dosage: 25 MILLIGRAM, ONE DOSE
     Route: 042
  3. ONDANSETRON [Suspect]
     Active Substance: ONDANSETRON
     Indication: VOMITING
  4. DULOXETINE. [Suspect]
     Active Substance: DULOXETINE
     Indication: NEUROPATHY PERIPHERAL
     Dosage: 30 MILLIGRAM, TWO TIMES A DAY
     Route: 048
  5. TRAMADOL. [Suspect]
     Active Substance: TRAMADOL
     Indication: PAIN
     Dosage: 50 MILLIGRAM
     Route: 048

REACTIONS (21)
  - Aspartate aminotransferase increased [Recovered/Resolved]
  - Blood alkaline phosphatase increased [Recovered/Resolved]
  - Hyperreflexia [Recovered/Resolved]
  - Blood pressure increased [Recovered/Resolved]
  - Clonus [Recovered/Resolved]
  - Asterixis [Unknown]
  - Vomiting [Recovered/Resolved]
  - Heart rate increased [Recovered/Resolved]
  - Peritoneal effluent leukocyte count increased [Recovered/Resolved]
  - Pain [Recovered/Resolved]
  - Diarrhoea [Recovered/Resolved]
  - Alanine aminotransferase increased [Recovered/Resolved]
  - Peritoneal effluent erythrocyte count increased [Recovered/Resolved]
  - Anxiety [Recovered/Resolved]
  - Blood creatinine increased [Recovered/Resolved]
  - Drug ineffective [Unknown]
  - Serotonin syndrome [Recovered/Resolved]
  - Nausea [Recovered/Resolved]
  - Emotional distress [Recovered/Resolved]
  - Blood urea increased [Recovered/Resolved]
  - Retching [Recovered/Resolved]
